FAERS Safety Report 6621753-8 (Version None)
Quarter: 2010Q1

REPORT INFORMATION
  Report Type: 
  Country: None (occurrence: None)
  Receive Date: 20100223
  Receipt Date: 20091127
  Transmission Date: 20100710
  Serious: No
  Sender: FDA-Public Use
  Company Number: 003982

PATIENT
  Sex: Female

DRUGS (1)
  1. CIMZIA [Suspect]
     Dates: start: 20090209

REACTIONS (1)
  - INFLUENZA LIKE ILLNESS [None]
